FAERS Safety Report 7937955-4 (Version None)
Quarter: 2011Q4

REPORT INFORMATION
  Report Type: 
  Country: None (occurrence: None)
  Receive Date: 20111123
  Receipt Date: 20111116
  Transmission Date: 20120403
  Serious: Yes (Other)
  Sender: FDA-Public Use
  Company Number: US-BAYER-201033474NA

PATIENT
  Age: 29 Year
  Sex: Female

DRUGS (10)
  1. IBUPROFEN [Suspect]
     Indication: PREMEDICATION
     Dosage: 200 MG, SOFTGEL CAPSULES
  2. BETASERON [Suspect]
     Dosage: 8 MIU, QOD
     Route: 058
     Dates: start: 20100801, end: 20101022
  3. PEPCID AC [Concomitant]
  4. BETASERON [Suspect]
     Indication: MULTIPLE SCLEROSIS
     Dosage: 2 MIU, QOD
     Dates: start: 20100822
  5. BETASERON [Suspect]
     Route: 058
     Dates: end: 20100801
  6. BETASERON [Suspect]
     Dosage: 4 MIU, QOD
     Route: 058
     Dates: start: 20110220
  7. BETASERON [Suspect]
     Dosage: 8 MIU, QOD
     Route: 058
  8. IBUPROFEN (ADVIL) [Suspect]
     Indication: PREMEDICATION
     Dosage: 200 MG, SOFTGEL CAPSULES
  9. EXTAVIA [Concomitant]
     Dosage: UNK
     Dates: start: 20101024, end: 20101123
  10. BETASERON [Suspect]
     Dosage: UNK
     Dates: start: 20101124, end: 20110214

REACTIONS (13)
  - CHEST PAIN [None]
  - INJECTION SITE ERYTHEMA [None]
  - HEADACHE [None]
  - PRURITUS [None]
  - INJECTION SITE RASH [None]
  - MIGRAINE [None]
  - BURNING SENSATION [None]
  - MUSCLE SPASMS [None]
  - OSTEITIS [None]
  - GASTRITIS [None]
  - MULTIPLE SCLEROSIS [None]
  - PAIN IN EXTREMITY [None]
  - ABDOMINAL PAIN UPPER [None]
